FAERS Safety Report 25346997 (Version 1)
Quarter: 2025Q2

REPORT INFORMATION
  Report Type: Spontaneous
  Country: US (occurrence: US)
  Receive Date: 20250522
  Receipt Date: 20250522
  Transmission Date: 20250716
  Serious: No
  Sender: MYLAN
  Company Number: US-MYLANLABS-2025M1041156

PATIENT

DRUGS (1)
  1. LISDEXAMFETAMINE DIMESYLATE [Suspect]
     Active Substance: LISDEXAMFETAMINE DIMESYLATE
     Indication: Attention deficit hyperactivity disorder

REACTIONS (15)
  - Abdominal pain [Unknown]
  - Influenza like illness [Unknown]
  - Illness [Unknown]
  - Apathy [Unknown]
  - Brain fog [Unknown]
  - Abdominal discomfort [Unknown]
  - Feeling abnormal [Unknown]
  - Confusional state [Unknown]
  - Somnolence [Unknown]
  - Abdominal distension [Unknown]
  - Nausea [Unknown]
  - Irritability [Unknown]
  - Oropharyngeal pain [Unknown]
  - Palpitations [Unknown]
  - Product taste abnormal [Unknown]
